FAERS Safety Report 8043366-6 (Version None)
Quarter: 2012Q1

REPORT INFORMATION
  Report Type: 
  Country: None (occurrence: None)
  Receive Date: 20120112
  Receipt Date: 20120104
  Transmission Date: 20120608
  Serious: Yes (Hospitalization, Other)
  Sender: FDA-Public Use
  Company Number: US-US-EMD SERONO, INC.-7104899

PATIENT
  Sex: Female
  Weight: 91 kg

DRUGS (4)
  1. CARDIZEM CD [Suspect]
     Indication: HYPERTENSION
  2. SYNTHROID [Concomitant]
  3. REBIF [Suspect]
     Indication: MULTIPLE SCLEROSIS
     Route: 058
     Dates: start: 20020717
  4. LISINOPRIL [Suspect]
     Indication: HYPERTENSION

REACTIONS (3)
  - HYPERTENSION [None]
  - INJECTION SITE CELLULITIS [None]
  - BLOOD PRESSURE DECREASED [None]
